FAERS Safety Report 8141400-6 (Version None)
Quarter: 2012Q1

REPORT INFORMATION
  Report Type: 
  Country: None (occurrence: None)
  Receive Date: 20120216
  Receipt Date: 20120210
  Transmission Date: 20120608
  Serious: Yes (Life-Threatening, Hospitalization, Other)
  Sender: FDA-Public Use
  Company Number: PHHY2012JP009862

PATIENT
  Age: 76 Year
  Sex: Male

DRUGS (10)
  1. SHINLUCK [Concomitant]
     Dosage: UNK UKN, UNK
  2. SENNOSIDE [Concomitant]
     Dosage: 1 DF, UNK
  3. LOSARTAN POTASSIUM [Concomitant]
     Dosage: 100 MG, UNK
     Route: 048
  4. TASIGNA [Suspect]
     Indication: CHRONIC MYELOID LEUKAEMIA
     Dosage: 400 MG, DAILY
     Route: 048
     Dates: start: 20120112, end: 20120116
  5. LIPITOR [Concomitant]
     Dosage: 10 MG, UNK
     Route: 048
  6. METFORMIN HCL [Concomitant]
     Dosage: 500 MG, UNK
     Route: 048
  7. AMARYL [Concomitant]
     Dosage: 0.5 MG, UNK
     Route: 048
  8. ARICEPT [Suspect]
     Dosage: 5 MG,
     Dates: start: 20090101, end: 20120117
  9. AMLODIPINE [Concomitant]
     Dosage: 5 MG, UNK
     Route: 048
  10. MUCOSTA [Concomitant]
     Dosage: 3 DF, UNK

REACTIONS (1)
  - TORSADE DE POINTES [None]
